FAERS Safety Report 19232348 (Version 1)
Quarter: 2021Q2

REPORT INFORMATION
  Report Type: Spontaneous
  Country: DE (occurrence: DE)
  Receive Date: 20210507
  Receipt Date: 20210507
  Transmission Date: 20210717
  Serious: Yes (Other)
  Sender: FDA-Public Use
  Company Number: NVSC2021DE102453

PATIENT
  Age: 68 Year
  Sex: Female

DRUGS (3)
  1. PEMETREXED. [Suspect]
     Active Substance: PEMETREXED
     Indication: LUNG ADENOCARCINOMA STAGE IV
     Dosage: 500 MG/M2, CYCLIC, DAY 1 EVERY 21 DAYS
     Route: 042
     Dates: start: 201904, end: 2019
  2. PEMBROLIZUMAB. [Suspect]
     Active Substance: PEMBROLIZUMAB
     Indication: LUNG ADENOCARCINOMA STAGE IV
     Dosage: 200 MG, CYCLIC, DAY 1 EVERY 21 DAYS
     Route: 042
     Dates: start: 201904, end: 2019
  3. CARBOPLATIN. [Suspect]
     Active Substance: CARBOPLATIN
     Indication: LUNG ADENOCARCINOMA STAGE IV
     Dosage: DAY 1, EVERY 21 DAYS
     Route: 042
     Dates: start: 201904, end: 2019

REACTIONS (3)
  - Malignant neoplasm progression [Unknown]
  - Lung adenocarcinoma stage IV [Unknown]
  - Product use in unapproved indication [Unknown]

NARRATIVE: CASE EVENT DATE: 201906
